FAERS Safety Report 4499221-1 (Version None)
Quarter: 2004Q4

REPORT INFORMATION
  Report Type: 
  Country: None (occurrence: None)
  Receive Date: 20041111
  Receipt Date: 20041029
  Transmission Date: 20050328
  Serious: Yes (Other)
  Sender: FDA-Public Use
  Company Number: NL-GLAXOSMITHKLINE-B0350529A

PATIENT

DRUGS (3)
  1. LAMOTRIGINE [Suspect]
     Dosage: 25MG TWICE PER DAY
     Route: 065
  2. FURABID [Suspect]
     Route: 065
     Dates: start: 20041026
  3. KEPPRA [Concomitant]
     Dosage: 1000MG PER DAY
     Route: 065

REACTIONS (2)
  - DRUG INTERACTION [None]
  - EPILEPSY [None]
